FAERS Safety Report 18832703 (Version 1)
Quarter: 2021Q1

REPORT INFORMATION
  Report Type: Spontaneous
  Country: US (occurrence: US)
  Receive Date: 20210202
  Receipt Date: 20210202
  Transmission Date: 20210419
  Serious: Yes (Other)
  Sender: FDA-Public Use
  Company Number: None

PATIENT
  Age: 54 Year

DRUGS (1)
  1. CREST WHITENING SYSTEM STRIPS D1) + LIGHT WHITESTRIPS 1 HOUR EXPRESS/N [Suspect]
     Active Substance: HYDROGEN PEROXIDE
     Route: 048

REACTIONS (3)
  - Tooth injury [None]
  - Tooth discolouration [None]
  - Hyperaesthesia teeth [None]
